FAERS Safety Report 12706862 (Version 1)
Quarter: 2016Q3

REPORT INFORMATION
  Report Type: Spontaneous
  Country: US (occurrence: US)
  Receive Date: 20160901
  Receipt Date: 20160901
  Transmission Date: 20161109
  Serious: No
  Sender: FDA-Public Use
  Company Number: US-BAYER-2016-152592

PATIENT
  Age: 33 Year
  Sex: Male
  Weight: 88 kg

DRUGS (4)
  1. HELIXATE FS [Suspect]
     Active Substance: ANTIHEMOPHILIC FACTOR, HUMAN RECOMBINANT
     Indication: FACTOR VIII DEFICIENCY
     Dosage: 4000 U, ONCE
  2. HELIXATE FS [Suspect]
     Active Substance: ANTIHEMOPHILIC FACTOR, HUMAN RECOMBINANT
     Indication: FACTOR V DEFICIENCY
     Dosage: 4000 U, BID
  3. PLASMA [Concomitant]
     Active Substance: HUMAN PLASMA
  4. AMINOCAPROIC ACID. [Concomitant]
     Active Substance: AMINOCAPROIC ACID
     Dosage: 12.5 G, UNK

REACTIONS (1)
  - Drug ineffective [None]
